FAERS Safety Report 25963005 (Version 2)
Quarter: 2025Q4

REPORT INFORMATION
  Report Type: Spontaneous
  Country: US (occurrence: US)
  Receive Date: 20251027
  Receipt Date: 20251113
  Transmission Date: 20260118
  Serious: Yes (Hospitalization, Other)
  Sender: APOTEX
  Company Number: US-APOTEX-2025AP031323

PATIENT
  Age: 29 Year
  Sex: Male

DRUGS (4)
  1. TEGRETOL XR [Suspect]
     Active Substance: CARBAMAZEPINE
     Indication: Product used for unknown indication
     Dosage: 600 MILLIGRAM, BID (THREE 200 MG 12 HR TABLETS BY MOUT)
     Route: 048
     Dates: start: 20110112
  2. CLONAZEPAM [Concomitant]
     Active Substance: CLONAZEPAM
     Indication: Product used for unknown indication
     Dosage: 0.5 MILLIGRAM, BID
     Route: 065
  3. FLUOXETINE [Concomitant]
     Active Substance: FLUOXETINE HYDROCHLORIDE
     Indication: Product used for unknown indication
     Dosage: 20 MILLIGRAM, QD
     Route: 065
  4. PAXLOVID [Concomitant]
     Active Substance: NIRMATRELVIR\RITONAVIR
     Indication: Product used for unknown indication
     Dosage: (NIRMATRELVIR 300 MG/RITONAVIR 100 MG) , BID
     Route: 065

REACTIONS (12)
  - Anticonvulsant drug level above therapeutic [Recovered/Resolved]
  - Haematocrit decreased [Recovered/Resolved]
  - Carbon dioxide increased [Recovered/Resolved]
  - Metabolic alkalosis [Recovered/Resolved]
  - Fibrin D dimer increased [Recovered/Resolved]
  - Gait disturbance [Recovered/Resolved]
  - Drop attacks [Recovered/Resolved]
  - Anaemia [Recovered/Resolved]
  - Haemoglobin decreased [Recovered/Resolved]
  - Vomiting [Recovered/Resolved]
  - Dizziness [Recovered/Resolved]
  - Nausea [Recovered/Resolved]

NARRATIVE: CASE EVENT DATE: 20231214
